FAERS Safety Report 25853637 (Version 1)
Quarter: 2025Q3

REPORT INFORMATION
  Report Type: Spontaneous
  Country: US (occurrence: US)
  Receive Date: 20250926
  Receipt Date: 20250926
  Transmission Date: 20251021
  Serious: Yes (Other)
  Sender: BAYER HEALTHCARE PHARMACEUTICALS INC.
  Company Number: US-BAYER-2025A128184

PATIENT

DRUGS (1)
  1. GADAVIST [Suspect]
     Active Substance: GADOBUTROL
     Indication: Magnetic resonance imaging
     Dates: start: 20250702, end: 20250702

REACTIONS (6)
  - Laryngeal oedema [None]
  - Cough [None]
  - Tremor [None]
  - Chills [None]
  - Pruritus [None]
  - Presyncope [None]

NARRATIVE: CASE EVENT DATE: 20250702
